FAERS Safety Report 10642636 (Version 2)
Quarter: 2015Q1

REPORT INFORMATION
  Report Type: Spontaneous
  Country: DE (occurrence: DE)
  Receive Date: 20141210
  Receipt Date: 20150107
  Transmission Date: 20150720
  Serious: Yes (Death, Life-Threatening, Hospitalization, Disabling, Other)
  Sender: FDA-Public Use
  Company Number: DE-ELI_LILLY_AND_COMPANY-DE201412002195

PATIENT
  Age: 47 Year
  Sex: Male

DRUGS (5)
  1. EFIENT [Suspect]
     Active Substance: PRASUGREL HYDROCHLORIDE
     Indication: ACUTE MYOCARDIAL INFARCTION
     Dosage: 60 MG, SINGLE
     Route: 048
     Dates: start: 20141010, end: 20141010
  2. HEPARIN [Concomitant]
     Active Substance: HEPARIN SODIUM
  3. BELOC ZOK [Concomitant]
     Active Substance: METOPROLOL SUCCINATE
  4. ASPISOL                            /00002703/ [Concomitant]
     Dosage: 500 MG, UNKNOWN
  5. MORPHIN                            /00036303/ [Concomitant]
     Active Substance: MORPHINE
     Dosage: 13 MG, UNKNOWN

REACTIONS (3)
  - Acute myocardial infarction [Fatal]
  - Cardiogenic shock [Fatal]
  - Pulseless electrical activity [Fatal]

NARRATIVE: CASE EVENT DATE: 20141010
